FAERS Safety Report 8219941-2 (Version None)
Quarter: 2012Q1

REPORT INFORMATION
  Report Type: 
  Country: None (occurrence: None)
  Receive Date: 20120319
  Receipt Date: 20120316
  Transmission Date: 20120608
  Serious: Yes (Other)
  Sender: FDA-Public Use
  Company Number: CO-ABBOTT-12P-036-0916352-00

PATIENT
  Age: 32 Year
  Sex: Female

DRUGS (9)
  1. PHENOBARBITAL TAB [Interacting]
     Indication: EPILEPSY
     Dosage: 1 GRAM DAILY
  2. VALPROATE SODIUM [Suspect]
     Indication: CONVULSION
     Dosage: 1500 MG DAILY
  3. TOPIRAMATE [Interacting]
  4. LEVETIRACETAM [Concomitant]
     Indication: PRODUCT USED FOR UNKNOWN INDICATION
  5. CARBAMAZEPINE [Concomitant]
     Indication: PRODUCT USED FOR UNKNOWN INDICATION
  6. GABAPENTIN [Concomitant]
     Indication: PRODUCT USED FOR UNKNOWN INDICATION
  7. TOPIRAMATE [Interacting]
  8. TOPIRAMATE [Interacting]
     Indication: EPILEPSY
  9. MIDAZOLAM [Concomitant]
     Indication: PRODUCT USED FOR UNKNOWN INDICATION

REACTIONS (2)
  - HYPERAMMONAEMIC ENCEPHALOPATHY [None]
  - DRUG INTERACTION [None]
